FAERS Safety Report 7138781-9 (Version None)
Quarter: 2010Q4

REPORT INFORMATION
  Report Type: 
  Country: None (occurrence: None)
  Receive Date: 20101206
  Receipt Date: 20101202
  Transmission Date: 20110411
  Serious: Yes (Death)
  Sender: FDA-Public Use
  Company Number: IN-B.I. PHARMACEUTICALS,INC./RIDGEFIELD-2010-BP-03373BP

PATIENT
  Sex: Female
  Weight: 9.06 kg

DRUGS (5)
  1. VIRAMUNE [Suspect]
     Indication: HIV INFECTION
     Route: 048
     Dates: start: 20091229, end: 20100320
  2. LAMIVUDINE [Suspect]
     Indication: HIV INFECTION
     Route: 048
     Dates: start: 20091229, end: 20100320
  3. ZIDOVUDINE [Suspect]
     Indication: HIV INFECTION
     Route: 048
     Dates: start: 20091229, end: 20100320
  4. COTRIMOXAZOLE [Concomitant]
     Indication: PROPHYLAXIS
     Route: 048
     Dates: end: 20100320
  5. TONOFERON (COLLOIDAL IRON, FOLIC ACID, AND VITAMIN B12) [Concomitant]
     Indication: NUTRITIONAL SUPPORT
     Route: 048
     Dates: end: 20100320

REACTIONS (1)
  - DEATH [None]
